FAERS Safety Report 7489024-8 (Version None)
Quarter: 2011Q2

REPORT INFORMATION
  Report Type: 
  Country: None (occurrence: None)
  Receive Date: 20110518
  Receipt Date: 20110513
  Transmission Date: 20111010
  Serious: Yes (Other)
  Sender: FDA-Public Use
  Company Number: CHPA2011US06718

PATIENT
  Age: 58 Year
  Sex: Female

DRUGS (3)
  1. VOLTAREN [Suspect]
     Indication: OSTEOARTHRITIS
     Dosage: 4 G, ONCE/SINGLE
     Route: 061
     Dates: start: 20110509, end: 20110509
  2. NORCO [Concomitant]
     Indication: PAIN
  3. LOPRESSOR [Concomitant]
     Indication: HYPERTENSION

REACTIONS (8)
  - FATIGUE [None]
  - VOMITING [None]
  - MALAISE [None]
  - HEART RATE INCREASED [None]
  - CHEST PAIN [None]
  - PALPITATIONS [None]
  - HYPERTENSION [None]
  - DRUG ADMINISTERED AT INAPPROPRIATE SITE [None]
